FAERS Safety Report 12100631 (Version 1)
Quarter: 2016Q1

REPORT INFORMATION
  Report Type: Report from Study
  Country: BR (occurrence: BR)
  Receive Date: 20160222
  Receipt Date: 20160222
  Transmission Date: 20160526
  Serious: Yes (Congenital Anomaly, Other)
  Sender: FDA-Public Use
  Company Number: BR-MYLANLABS-2016M1006762

PATIENT

DRUGS (1)
  1. DICLOFENAC [Suspect]
     Active Substance: DICLOFENAC
     Indication: THROMBOPHLEBITIS SUPERFICIAL
     Dosage: 150 MG/DAY FOR 5 DAYS
     Route: 064

REACTIONS (4)
  - Ductus arteriosus stenosis foetal [Unknown]
  - Tricuspid valve incompetence [Unknown]
  - Foetal exposure during pregnancy [Recovered/Resolved]
  - Dilatation ventricular [Unknown]
